FAERS Safety Report 18410739 (Version 1)
Quarter: 2020Q4

REPORT INFORMATION
  Report Type: Spontaneous
  Country: IT (occurrence: IT)
  Receive Date: 20201021
  Receipt Date: 20201021
  Transmission Date: 20210114
  Serious: Yes (Hospitalization)
  Sender: FDA-Public Use
  Company Number: IT-MYLANLABS-2020M1088221

PATIENT
  Age: 77 Year
  Sex: Female
  Weight: 52 kg

DRUGS (2)
  1. ALMARYTM [Concomitant]
     Active Substance: FLECAINIDE ACETATE
     Indication: ATRIAL FIBRILLATION
     Dosage: 200 MILLIGRAM, QD
     Dates: start: 20170101
  2. CITALOPRAM [Suspect]
     Active Substance: CITALOPRAM HYDROBROMIDE
     Indication: ANXIETY
     Dosage: 4 GTT DROPS, QD
     Dates: start: 20200910, end: 20200914

REACTIONS (4)
  - Bradycardia [Recovered/Resolved]
  - Atrioventricular block [Recovered/Resolved]
  - Nausea [Recovered/Resolved]
  - Asthenia [Recovered/Resolved]

NARRATIVE: CASE EVENT DATE: 20200914
